FAERS Safety Report 6036186-5 (Version None)
Quarter: 2009Q1

REPORT INFORMATION
  Report Type: 
  Country: None (occurrence: None)
  Receive Date: 20090113
  Receipt Date: 20090106
  Transmission Date: 20090719
  Serious: Yes (Other)
  Sender: FDA-Public Use
  Company Number: FR-ROXANE LABORATORIES, INC.-2009-RO-00018RO

PATIENT
  Age: 64 Year
  Sex: Female

DRUGS (14)
  1. METHOTREXATE [Suspect]
     Indication: DIFFUSE LARGE B-CELL LYMPHOMA
     Route: 042
  2. FUROSEMIDE [Suspect]
     Indication: HYPERTENSION
  3. DOXORUBICIN HCL [Suspect]
     Indication: DIFFUSE LARGE B-CELL LYMPHOMA
     Route: 042
  4. SODIUM BICARBONATE [Suspect]
     Indication: THERAPEUTIC PROCEDURE
  5. SODIUM BICARBONATE [Suspect]
     Indication: DRUG TOXICITY
  6. DEXTROSE 5% [Suspect]
     Indication: THERAPEUTIC PROCEDURE
  7. DEXTROSE 5% [Suspect]
     Indication: DRUG TOXICITY
  8. SODIUM CHLORIDE [Suspect]
     Indication: THERAPEUTIC PROCEDURE
     Dosage: 6G
  9. SODIUM CHLORIDE [Suspect]
     Indication: DRUG TOXICITY
  10. FOLIC ACID [Suspect]
     Indication: THERAPEUTIC PROCEDURE
     Route: 042
  11. FOLIC ACID [Suspect]
     Indication: DRUG TOXICITY
  12. FOLIC ACID [Suspect]
  13. FOLIC ACID [Suspect]
  14. CPDG2 [Concomitant]
     Indication: DRUG TOXICITY

REACTIONS (3)
  - DRUG TOXICITY [None]
  - OVERDOSE [None]
  - RENAL FAILURE ACUTE [None]
